FAERS Safety Report 8819032 (Version 4)
Quarter: 2013Q4

REPORT INFORMATION
  Report Type: Spontaneous
  Country: US (occurrence: US)
  Receive Date: 20121001
  Receipt Date: 20131219
  Transmission Date: 20140711
  Serious: Yes (Hospitalization)
  Sender: FDA-Public Use
  Company Number: US-JNJFOC-20120910793

PATIENT
  Age: 79 Year
  Sex: Male
  Weight: 65.77 kg

DRUGS (13)
  1. REMICADE [Suspect]
     Indication: RHEUMATOID ARTHRITIS
     Route: 042
     Dates: start: 20120718, end: 20120718
  2. REMICADE [Suspect]
     Indication: RHEUMATOID ARTHRITIS
     Route: 042
     Dates: start: 2008
  3. METHOTREXATE [Suspect]
     Indication: RHEUMATOID ARTHRITIS
     Dosage: 5-2.5 MG A WEEK
     Route: 065
     Dates: start: 2003, end: 20121108
  4. SULFASALAZINE [Suspect]
     Indication: RHEUMATOID ARTHRITIS
     Dosage: 2 TABLETS
     Route: 065
     Dates: start: 20121008, end: 20121030
  5. ITRACONAZOLE [Suspect]
     Indication: HISTOPLASMOSIS
     Route: 065
     Dates: start: 20121011
  6. PREDNISONE [Suspect]
     Indication: RHEUMATOID ARTHRITIS
     Route: 065
  7. NORVASC [Concomitant]
     Indication: HYPERTENSION
     Route: 065
     Dates: end: 20120811
  8. FOLIC ACID [Concomitant]
     Indication: RHEUMATOID ARTHRITIS
     Route: 065
     Dates: end: 20120811
  9. VITAMIN D [Concomitant]
     Route: 065
     Dates: end: 20120811
  10. VITAMIN C [Concomitant]
     Route: 065
     Dates: end: 20120811
  11. GARLIC [Concomitant]
     Route: 065
     Dates: end: 20120811
  12. OMEGA 3 FISH OIL [Concomitant]
     Route: 065
     Dates: end: 20120811
  13. CALCIUM [Concomitant]
     Route: 065
     Dates: end: 20120811

REACTIONS (3)
  - Histoplasmosis [Recovered/Resolved]
  - Dermatitis allergic [Not Recovered/Not Resolved]
  - Abdominal pain upper [Unknown]
